FAERS Safety Report 19965134 (Version 3)
Quarter: 2021Q4

REPORT INFORMATION
  Report Type: Report from Study
  Country: IL (occurrence: IL)
  Receive Date: 20211018
  Receipt Date: 20211129
  Transmission Date: 20220303
  Serious: Yes (Death)
  Sender: FDA-Public Use
  Company Number: IL-PFIZER INC-202101231120

PATIENT
  Age: 66 Year
  Sex: Male
  Weight: 124 kg

DRUGS (9)
  1. AVELUMAB [Suspect]
     Active Substance: AVELUMAB
     Indication: Renal cell carcinoma
     Dosage: 1160 MG, CYCLIC, EVERY 2 WEEKS
     Route: 042
     Dates: start: 20170405, end: 20210707
  2. INLYTA [Suspect]
     Active Substance: AXITINIB
     Indication: Renal cell carcinoma
     Dosage: 5 MG 2X/DAY (CONTINUOUS)
     Route: 048
     Dates: start: 20170405, end: 20210623
  3. PREDNISONE [Concomitant]
     Active Substance: PREDNISONE
     Indication: Autoimmune nephritis
     Dosage: 20 MG, 2X/DAY
     Route: 048
     Dates: start: 20210804, end: 20210811
  4. PREDNISONE [Concomitant]
     Active Substance: PREDNISONE
     Dosage: 100 MG, 1X/DAY
     Route: 048
     Dates: start: 20210812, end: 20210905
  5. PREDNISONE [Concomitant]
     Active Substance: PREDNISONE
     Dosage: 90 MG, 1X/DAY
     Route: 048
     Dates: start: 20210906, end: 20210911
  6. PREDNISONE [Concomitant]
     Active Substance: PREDNISONE
     Dosage: 80 MG, 1X/DAY
     Route: 048
     Dates: start: 20210912, end: 20210919
  7. LANTUS [Concomitant]
     Active Substance: INSULIN GLARGINE
     Indication: Blood glucose increased
     Dosage: 54 UNITED STATES PHARMACOPEIA UNIT, 1X/DAY (QD)
     Route: 058
     Dates: start: 20210805
  8. TRULICITY [Concomitant]
     Active Substance: DULAGLUTIDE
     Indication: Blood glucose increased
     Dosage: 0.1 MG, WEEKLY (ONCE A WEEK)
     Route: 058
     Dates: start: 20210109
  9. NOVORAPID [Concomitant]
     Active Substance: INSULIN ASPART
     Indication: Blood glucose increased
     Dosage: UNK, AS NEEDED (PRN)
     Route: 048
     Dates: start: 20210906

REACTIONS (1)
  - Respiratory failure [Fatal]

NARRATIVE: CASE EVENT DATE: 20210919
